FAERS Safety Report 4669550-7 (Version None)
Quarter: 2005Q2

REPORT INFORMATION
  Report Type: 
  Country: None (occurrence: None)
  Receive Date: 20050523
  Receipt Date: 20050210
  Transmission Date: 20051028
  Serious: Yes (Hospitalization)
  Sender: FDA-Public Use
  Company Number: PHBS2005NZ02123

PATIENT
  Age: 40 Year
  Sex: Male

DRUGS (3)
  1. CLOZARIL [Suspect]
     Dosage: 700 MG/DAY
     Route: 048
     Dates: start: 20020807, end: 20050116
  2. ANTIHISTAMINICS [Concomitant]
     Indication: ARTHROPOD STING
     Dates: start: 20050101
  3. CHLORPROMAZINE [Concomitant]

REACTIONS (6)
  - BLOOD CREATINE PHOSPHOKINASE INCREASED [None]
  - DYSSTASIA [None]
  - MUSCLE RIGIDITY [None]
  - NEUROLEPTIC MALIGNANT SYNDROME [None]
  - PNEUMONIA ASPIRATION [None]
  - PYREXIA [None]
